APPROVED DRUG PRODUCT: KETOPROFEN
Active Ingredient: KETOPROFEN
Strength: 50MG
Dosage Form/Route: CAPSULE;ORAL
Application: A074014 | Product #002 | TE Code: AB
Applicant: MISEMER PHARMACEUTICALS INC
Approved: Jan 29, 1993 | RLD: No | RS: No | Type: RX